FAERS Safety Report 9187383 (Version 2)
Quarter: 2013Q1

REPORT INFORMATION
  Report Type: Spontaneous
  Country: DE (occurrence: JP)
  Receive Date: 20130325
  Receipt Date: 20130325
  Transmission Date: 20140127
  Serious: Yes (Hospitalization)
  Sender: FDA-Public Use
  Company Number: JP-BRACCO-006520

PATIENT
  Age: 59 Year
  Sex: Male
  Weight: 78 kg

DRUGS (11)
  1. NITROPEN [Concomitant]
     Dosage: 1T GIVEN AT 10:00
     Route: 060
     Dates: start: 20121107
  2. IOPAMIRON [Suspect]
     Indication: ANGINA PECTORIS
     Dosage: 5.5 ML/SEC FOR 10 SEC
     Route: 042
     Dates: start: 20121107, end: 20121107
  3. IOPAMIRON [Suspect]
     Indication: COMPUTERISED TOMOGRAM CORONARY ARTERY
     Dosage: 5.5 ML/SEC FOR 10 SEC
     Route: 042
     Dates: start: 20121107, end: 20121107
  4. LOCHOL [Concomitant]
  5. NEXIUM [Concomitant]
  6. HERBESSER [Concomitant]
  7. AMARYL [Concomitant]
  8. FRANDOL [Concomitant]
  9. JANUVIA [Concomitant]
  10. BLOPRESS [Concomitant]
  11. BAYASPIRIN [Concomitant]

REACTIONS (2)
  - Shock [Recovered/Resolved]
  - Arteriospasm coronary [Recovered/Resolved]
